FAERS Safety Report 6566533-7 (Version None)
Quarter: 2010Q1

REPORT INFORMATION
  Report Type: 
  Country: None (occurrence: None)
  Receive Date: 20100202
  Receipt Date: 20100127
  Transmission Date: 20100710
  Serious: Yes (Hospitalization)
  Sender: FDA-Public Use
  Company Number: US-ROXANE LABORATORIES, INC.-2010-RO-00106RO

PATIENT
  Age: 2 Year
  Sex: Male

DRUGS (14)
  1. CYCLOPHOSPHAMIDE [Suspect]
     Indication: B PRECURSOR TYPE ACUTE LEUKAEMIA
  2. DEXAMETHASONE [Suspect]
     Indication: B PRECURSOR TYPE ACUTE LEUKAEMIA
  3. VINCRISTINE [Suspect]
     Indication: B PRECURSOR TYPE ACUTE LEUKAEMIA
  4. DOXORUBICIN HCL [Suspect]
     Indication: B PRECURSOR TYPE ACUTE LEUKAEMIA
  5. CYTARABINE [Suspect]
     Indication: B PRECURSOR TYPE ACUTE LEUKAEMIA
  6. PIPERACILLIN AND TAZOBACTAM [Concomitant]
     Indication: EVIDENCE BASED TREATMENT
  7. VANCOMYCIN [Concomitant]
     Indication: EVIDENCE BASED TREATMENT
  8. TOBRAMYCIN [Concomitant]
     Indication: EVIDENCE BASED TREATMENT
  9. AMPHOTERICIN B [Concomitant]
  10. ISONIAZID [Concomitant]
     Indication: TUBERCULOSIS
  11. RIFAMPIN [Concomitant]
     Indication: TUBERCULOSIS
  12. PYRAZINAMIDE [Concomitant]
     Indication: TUBERCULOSIS
  13. AZITHROMYCIN [Concomitant]
  14. ETHAMBUTOL HYDROCHLORIDE [Concomitant]
     Indication: TUBERCULOSIS

REACTIONS (2)
  - PULMONARY TUBERCULOSIS [None]
  - PYREXIA [None]
